FAERS Safety Report 7252874-7 (Version None)
Quarter: 2011Q1

REPORT INFORMATION
  Report Type: 
  Country: None (occurrence: None)
  Receive Date: 20110129
  Receipt Date: 20100325
  Transmission Date: 20110831
  Serious: No
  Sender: FDA-Public Use
  Company Number: US-ABBOTT-10P-163-0635147-00

PATIENT
  Sex: Female
  Weight: 112.59 kg

DRUGS (4)
  1. INSULIN [Concomitant]
     Indication: DIABETES MELLITUS
     Dosage: DAILY AT BEDTIME
     Route: 058
  2. GLYBURIDE [Concomitant]
     Indication: DIABETES MELLITUS
     Route: 048
  3. LYRICA [Concomitant]
     Indication: RESTLESS LEGS SYNDROME
  4. HUMIRA [Suspect]
     Indication: PSORIASIS
     Route: 058
     Dates: start: 20100212

REACTIONS (4)
  - SKIN FISSURES [None]
  - BLOOD PRESSURE FLUCTUATION [None]
  - DRUG INEFFECTIVE [None]
  - SKIN HAEMORRHAGE [None]
